FAERS Safety Report 18672494 (Version 1)
Quarter: 2020Q4

REPORT INFORMATION
  Report Type: Report from Study
  Country: None (occurrence: US)
  Receive Date: 20201229
  Receipt Date: 20201229
  Transmission Date: 20210114
  Serious: Yes (Other)
  Sender: FDA-Public Use
  Company Number: US-ABBVIE-20K-163-3705819-00

PATIENT
  Age: 63 Year
  Sex: Female

DRUGS (2)
  1. HUMIRA [Suspect]
     Active Substance: ADALIMUMAB
     Indication: ANKYLOSING SPONDYLITIS
     Route: 058
  2. HUMIRA [Suspect]
     Active Substance: ADALIMUMAB
     Indication: RHEUMATOID ARTHRITIS

REACTIONS (8)
  - Shoulder operation [Unknown]
  - Pain in extremity [Unknown]
  - Surgery [Unknown]
  - Foot deformity [Not Recovered/Not Resolved]
  - Post procedural complication [Unknown]
  - Lower limb fracture [Unknown]
  - Injury [Unknown]
  - Depression [Unknown]

NARRATIVE: CASE EVENT DATE: 202009
